FAERS Safety Report 14188179 (Version 4)
Quarter: 2018Q1

REPORT INFORMATION
  Report Type: Report from Study
  Country: TR (occurrence: TR)
  Receive Date: 20171114
  Receipt Date: 20180221
  Transmission Date: 20180508
  Serious: Yes (Death, Other)
  Sender: FDA-Public Use
  Company Number: TR-GILEAD-2017-0303609

PATIENT
  Age: 23 Year
  Sex: Male

DRUGS (9)
  1. LEDIPASVIR/SOFOSBUVIR [Suspect]
     Active Substance: LEDIPASVIR\SOFOSBUVIR
     Indication: CHRONIC HEPATITIS C
     Dosage: 1 DF, UNK
     Route: 048
     Dates: start: 20161215, end: 20170424
  2. LEVOTRON [Concomitant]
  3. DESAL                              /00032601/ [Concomitant]
  4. RIBAVIRIN. [Suspect]
     Active Substance: RIBAVIRIN
     Indication: CHRONIC HEPATITIS C
     Dosage: UNK
     Route: 065
     Dates: start: 20161215
  5. DIGOXIN. [Concomitant]
     Active Substance: DIGOXIN
  6. ASIC [Concomitant]
  7. INSULIN [Concomitant]
     Active Substance: INSULIN NOS
  8. SPIRONOLACTONE. [Concomitant]
     Active Substance: SPIRONOLACTONE
  9. CORALAN [Concomitant]
     Active Substance: IVABRADINE HYDROCHLORIDE
     Dosage: 5 MG, UNK

REACTIONS (1)
  - Cardiac failure congestive [Fatal]
